FAERS Safety Report 5209703-2 (Version None)
Quarter: 2006Q4

REPORT INFORMATION
  Report Type: 
  Country: None (occurrence: None)
  Receive Date: 20061128
  Receipt Date: 20051110
  Transmission Date: 20070319
  Serious: Yes (Other)
  Sender: FDA-Public Use
  Company Number: 2005138941

PATIENT
  Sex: Female
  Weight: 54.4316 kg

DRUGS (7)
  1. DOFETILIDE (DOFETILIDE) [Suspect]
     Indication: ATRIAL FIBRILLATION
     Dosage: 0.25 (0.125 MG, BID INTERVAL:  EVERY DAY)
     Dates: start: 20031101
  2. COREG [Concomitant]
  3. METOPROLOL TARTRATE [Concomitant]
  4. DILTIAZEM [Concomitant]
  5. CARDIZEM [Concomitant]
  6. QUINIDINE (QUINIDINE) [Concomitant]
  7. CLINDAMYCIN [Concomitant]

REACTIONS (2)
  - ATRIAL FIBRILLATION [None]
  - MEDICATION RESIDUE [None]
